FAERS Safety Report 16173011 (Version 1)
Quarter: 2019Q2

REPORT INFORMATION
  Report Type: Spontaneous
  Country: US (occurrence: US)
  Receive Date: 20190409
  Receipt Date: 20190409
  Transmission Date: 20190711
  Serious: No
  Sender: FDA-Public Use
  Company Number: US-PFIZER INC-2019150482

PATIENT
  Age: 61 Year
  Sex: Female
  Weight: 85.71 kg

DRUGS (2)
  1. DAYPRO [Suspect]
     Active Substance: OXAPROZIN
  2. VIOXX [Suspect]
     Active Substance: ROFECOXIB

REACTIONS (1)
  - Drug hypersensitivity [Unknown]
